FAERS Safety Report 23142759 (Version 6)
Quarter: 2025Q1

REPORT INFORMATION
  Report Type: Spontaneous
  Country: JP (occurrence: JP)
  Receive Date: 20231103
  Receipt Date: 20250305
  Transmission Date: 20250409
  Serious: Yes (Hospitalization)
  Sender: EISAI
  Company Number: JP-Eisai-202307412_LEN-EC_P_1

PATIENT
  Age: 57 Year
  Sex: Female

DRUGS (5)
  1. LENVATINIB [Suspect]
     Active Substance: LENVATINIB
     Indication: Endometrial cancer
     Route: 048
     Dates: start: 20230221, end: 202304
  2. LENVATINIB [Suspect]
     Active Substance: LENVATINIB
     Dates: start: 2023, end: 20230701
  3. PEMBROLIZUMAB [Suspect]
     Active Substance: PEMBROLIZUMAB
     Indication: Endometrial cancer
     Route: 041
     Dates: start: 20230221, end: 202304
  4. PEMBROLIZUMAB [Suspect]
     Active Substance: PEMBROLIZUMAB
     Route: 041
     Dates: start: 2023, end: 20230701
  5. PREDNISOLONE [Concomitant]
     Active Substance: PREDNISOLONE
     Indication: Thyroiditis subacute

REACTIONS (2)
  - Schizophrenia [Unknown]
  - Immune-mediated thyroiditis [Recovering/Resolving]

NARRATIVE: CASE EVENT DATE: 20230401
